FAERS Safety Report 5734820-8 (Version None)
Quarter: 2008Q2

REPORT INFORMATION
  Report Type: 
  Country: None (occurrence: None)
  Receive Date: 20080512
  Receipt Date: 20080429
  Transmission Date: 20081010
  Serious: Yes (Hospitalization)
  Sender: FDA-Public Use
  Company Number: US-JNJFOC-20080200699

PATIENT
  Sex: Male
  Weight: 95.26 kg

DRUGS (9)
  1. TRAMADOL HCL [Suspect]
     Route: 048
  2. TRAMADOL HCL [Suspect]
     Indication: OSTEOARTHRITIS
     Route: 048
  3. MELOXICAM [Suspect]
     Route: 048
  4. MELOXICAM [Suspect]
     Indication: OSTEOARTHRITIS
     Route: 048
  5. PLAVIX [Concomitant]
     Route: 065
  6. ASPIRIN [Concomitant]
     Route: 065
  7. SIMVASTATIN [Concomitant]
     Route: 065
  8. LOSARTAN POTASSIUM [Concomitant]
     Route: 065
  9. PROTONIX [Concomitant]
     Route: 065

REACTIONS (1)
  - DIVERTICULITIS [None]
